FAERS Safety Report 22284503 (Version 2)
Quarter: 2023Q2

REPORT INFORMATION
  Report Type: Spontaneous
  Country: FR (occurrence: FR)
  Receive Date: 20230504
  Receipt Date: 20230522
  Transmission Date: 20230721
  Serious: Yes (Hospitalization)
  Sender: FDA-Public Use
  Company Number: None

PATIENT
  Age: 63 Year
  Sex: Male
  Weight: 84 kg

DRUGS (4)
  1. PIPERACILLIN SODIUM\TAZOBACTAM SODIUM [Suspect]
     Active Substance: PIPERACILLIN SODIUM\TAZOBACTAM SODIUM
     Indication: Dermo-hypodermitis
     Dosage: 1 DF
     Route: 042
     Dates: start: 20230401, end: 20230407
  2. AMOXICILLIN [Suspect]
     Active Substance: AMOXICILLIN
     Indication: Dermo-hypodermitis
     Dosage: 1 DF
     Route: 042
     Dates: start: 20230331, end: 20230401
  3. CLINDAMYCIN [Suspect]
     Active Substance: CLINDAMYCIN
     Indication: Dermo-hypodermitis
     Dosage: 1 DF
     Route: 042
     Dates: start: 20230401, end: 20230406
  4. DAPTOMYCIN [Concomitant]
     Active Substance: DAPTOMYCIN
     Indication: Dermo-hypodermitis
     Dosage: 1 DF
     Route: 042
     Dates: start: 20230406, end: 20230412

REACTIONS (2)
  - Vomiting [Recovering/Resolving]
  - Cholestasis [Recovering/Resolving]

NARRATIVE: CASE EVENT DATE: 20230403
